FAERS Safety Report 8601073-2 (Version None)
Quarter: 2012Q3

REPORT INFORMATION
  Report Type: 
  Country: None (occurrence: None)
  Receive Date: 20120817
  Receipt Date: 20120813
  Transmission Date: 20120928
  Serious: Yes (Life-Threatening, Hospitalization)
  Sender: FDA-Public Use
  Company Number: DE-CELGENEUS-062-21880-12081455

PATIENT
  Age: 72 Year

DRUGS (4)
  1. REVLIMID [Suspect]
     Route: 048
     Dates: start: 20120711, end: 20120731
  2. DACARBAZINE [Suspect]
     Route: 065
     Dates: start: 20120711, end: 20120730
  3. ADRIAMYCIN PFS [Suspect]
     Route: 065
     Dates: start: 20120711, end: 20120730
  4. VINBLASTINE SULFATE [Suspect]
     Route: 065
     Dates: start: 20120711, end: 20120730

REACTIONS (3)
  - HYPOTENSION [None]
  - FEBRILE NEUTROPENIA [None]
  - CONSTIPATION [None]
